FAERS Safety Report 25491463 (Version 2)
Quarter: 2025Q3

REPORT INFORMATION
  Report Type: Report from Study
  Country: US (occurrence: US)
  Receive Date: 20250629
  Receipt Date: 20250729
  Transmission Date: 20251020
  Serious: Yes (Other)
  Sender: ABBVIE
  Company Number: US-ABBVIE-6342806

PATIENT
  Age: 53 Year
  Sex: Female

DRUGS (2)
  1. RINVOQ [Suspect]
     Active Substance: UPADACITINIB
     Indication: Psoriatic arthropathy
     Route: 048
     Dates: start: 20240510
  2. TRAMADOL [Concomitant]
     Active Substance: TRAMADOL
     Indication: Product used for unknown indication

REACTIONS (15)
  - Gastric bypass [Unknown]
  - Blood pressure increased [Unknown]
  - Blindness transient [Unknown]
  - Leukopenia [Unknown]
  - Therapeutic product effect decreased [Unknown]
  - Polycystic ovarian syndrome [Unknown]
  - Anaemia [Unknown]
  - Pain in extremity [Unknown]
  - Pollakiuria [Unknown]
  - Inflammation [Unknown]
  - Malabsorption [Unknown]
  - Immune system disorder [Recovering/Resolving]
  - Back pain [Unknown]
  - Arthralgia [Unknown]
  - Renal disorder [Unknown]

NARRATIVE: CASE EVENT DATE: 20240810
